FAERS Safety Report 5348240-1 (Version None)
Quarter: 2007Q2

REPORT INFORMATION
  Report Type: 
  Country: None (occurrence: None)
  Receive Date: 20070605
  Receipt Date: 20070531
  Transmission Date: 20071010
  Serious: Yes (Death)
  Sender: FDA-Public Use
  Company Number: 167-C5013-07051586

PATIENT
  Age: 68 Year
  Sex: Male

DRUGS (7)
  1. CC-5013           (LENALIDOMIDE) [Suspect]
     Indication: MULTIPLE MYELOMA
     Dosage: 25 MG, ORAL
     Route: 048
     Dates: start: 20060710, end: 20060831
  2. DEXAMETHASONE 0.5MG TAB [Concomitant]
     Route: 048
  3. ACYCLOVIR [Concomitant]
  4. SEPTRAN (BACTRIM) [Concomitant]
  5. LANSOPRAZOLE [Concomitant]
  6. PENICILLIN V [Concomitant]
  7. FLUCONAZOLE [Concomitant]

REACTIONS (2)
  - DISEASE PROGRESSION [None]
  - NEUROPATHY [None]
